FAERS Safety Report 21102694 (Version 2)
Quarter: 2022Q3

REPORT INFORMATION
  Report Type: Spontaneous
  Country: JP (occurrence: JP)
  Receive Date: 20220720
  Receipt Date: 20220727
  Transmission Date: 20221027
  Serious: Yes (Other)
  Sender: FDA-Public Use
  Company Number: JP-NOVARTISPH-NVSJ2022JP094362

PATIENT
  Age: 65 Year
  Sex: Male
  Weight: 50 kg

DRUGS (6)
  1. FLUMAZENIL [Suspect]
     Active Substance: FLUMAZENIL
     Indication: Reversal of sedation
     Dosage: UNK
     Route: 065
  2. HEPARIN [Concomitant]
     Active Substance: HEPARIN SODIUM
     Indication: Deep vein thrombosis
     Dosage: UNK
     Route: 065
  3. HEPARIN [Concomitant]
     Active Substance: HEPARIN SODIUM
     Indication: Splenic infarction
  4. HEPARIN [Concomitant]
     Active Substance: HEPARIN SODIUM
     Indication: Renal infarct
  5. ASPIRIN [Concomitant]
     Active Substance: ASPIRIN
     Indication: Intracardiac thrombus
     Dosage: UNK
     Route: 065
  6. WARFARIN [Concomitant]
     Active Substance: WARFARIN
     Indication: Intracardiac thrombus
     Dosage: UNK
     Route: 065

REACTIONS (3)
  - Unresponsive to stimuli [Unknown]
  - Delayed recovery from anaesthesia [Unknown]
  - Therapeutic product effect incomplete [Unknown]
